FAERS Safety Report 9437171 (Version 6)
Quarter: 2015Q1

REPORT INFORMATION
  Report Type: Report from Study
  Country: JP (occurrence: JP)
  Receive Date: 20130802
  Receipt Date: 20150219
  Transmission Date: 20150721
  Serious: Yes (Hospitalization)
  Sender: FDA-Public Use
  Company Number: JP-ROCHE-1254784

PATIENT
  Age: 51 Year
  Sex: Male

DRUGS (58)
  1. VALGANCICLOVIR [Suspect]
     Active Substance: VALGANCICLOVIR
     Indication: CYTOMEGALOVIRUS INFECTION
     Route: 048
     Dates: start: 20110109, end: 20110218
  2. SAWACILLIN [Concomitant]
     Active Substance: AMOXICILLIN
     Indication: SYPHILIS
     Route: 048
     Dates: start: 20110107, end: 20110203
  3. MYSLEE [Concomitant]
     Active Substance: ZOLPIDEM TARTRATE
     Route: 048
     Dates: start: 20120307, end: 20140331
  4. NAUZELIN [Concomitant]
     Active Substance: DOMPERIDONE
     Indication: PROPHYLAXIS
     Route: 048
     Dates: start: 20110206, end: 20111114
  5. TALION (JAPAN) [Concomitant]
     Active Substance: BEPOTASTINE
     Indication: SEBORRHOEIC DERMATITIS
     Route: 048
     Dates: start: 20110107, end: 20110218
  6. OMEPRAZOLE. [Concomitant]
     Active Substance: OMEPRAZOLE
     Route: 065
     Dates: start: 20110122, end: 20120128
  7. LOXONIN [Concomitant]
     Active Substance: LOXOPROFEN SODIUM
     Route: 048
     Dates: start: 20110126, end: 20110323
  8. LOXONIN [Concomitant]
     Active Substance: LOXOPROFEN SODIUM
     Route: 065
     Dates: start: 20130227, end: 20130331
  9. MARZULENE-S [Concomitant]
     Active Substance: SODIUM GUALENATE
     Route: 048
     Dates: end: 20111110
  10. CALONAL [Concomitant]
     Active Substance: ACETAMINOPHEN
     Indication: HEADACHE
     Route: 048
     Dates: start: 20130510, end: 20130721
  11. VALGANCICLOVIR [Suspect]
     Active Substance: VALGANCICLOVIR
     Route: 048
     Dates: start: 20110219, end: 20110726
  12. VALGANCICLOVIR [Suspect]
     Active Substance: VALGANCICLOVIR
     Route: 048
     Dates: start: 20110929, end: 20111004
  13. ENTERONON-R [Suspect]
     Active Substance: PROBIOTICS NOS
     Indication: PRODUCT USED FOR UNKNOWN INDICATION
     Route: 048
     Dates: start: 20110120, end: 20110218
  14. MYCOBUTIN [Suspect]
     Active Substance: RIFABUTIN
     Indication: OPPORTUNISTIC INFECTION PROPHYLAXIS
     Route: 048
     Dates: start: 20110505, end: 20111227
  15. MAGLAX [Concomitant]
     Active Substance: MAGNESIUM OXIDE
     Indication: CONSTIPATION
     Route: 048
     Dates: start: 20110110, end: 20110117
  16. ROHYPNOL [Concomitant]
     Active Substance: FLUNITRAZEPAM
     Indication: INSOMNIA
     Route: 048
     Dates: start: 20110608, end: 20111114
  17. REBAMIPIDE [Concomitant]
     Active Substance: REBAMIPIDE
     Route: 048
     Dates: start: 20130227, end: 20130428
  18. DENOSINE [Concomitant]
     Active Substance: GANCICLOVIR
     Indication: CYTOMEGALOVIRUS INFECTION
     Route: 041
     Dates: start: 20121005, end: 20121007
  19. FOSCAVIR [Concomitant]
     Active Substance: FOSCARNET SODIUM
     Indication: CYTOMEGALOVIRUS VIRAEMIA
     Route: 051
     Dates: start: 20111007, end: 20111018
  20. VALGANCICLOVIR [Suspect]
     Active Substance: VALGANCICLOVIR
     Route: 048
     Dates: start: 20111209, end: 20111228
  21. AZITHROMYCIN [Suspect]
     Active Substance: AZITHROMYCIN ANHYDROUS
     Route: 065
     Dates: start: 20111228, end: 20130123
  22. RIFABUTIN. [Suspect]
     Active Substance: RIFABUTIN
     Indication: MYCOBACTERIUM AVIUM COMPLEX INFECTION
     Route: 048
     Dates: start: 20110305, end: 20111227
  23. VFEND [Concomitant]
     Active Substance: VORICONAZOLE
     Route: 048
     Dates: start: 20110114, end: 20110119
  24. FLUCONAZOLE. [Concomitant]
     Active Substance: FLUCONAZOLE
     Route: 048
     Dates: start: 20111012, end: 20111228
  25. MYONAL (JAPAN) [Concomitant]
     Active Substance: EPERISONE HYDROCHLORIDE
     Route: 048
     Dates: start: 20110126, end: 20110223
  26. ALBUMIN TANNATE [Concomitant]
     Active Substance: ALBUMIN BOVINE\TANNIC ACID
     Route: 048
     Dates: start: 20110129, end: 20110220
  27. FOLIAMIN [Concomitant]
     Active Substance: FOLIC ACID
     Route: 065
     Dates: start: 20111019, end: 20120203
  28. SULFAMETHOXAZOLE/TRIMETHOPRIM [Suspect]
     Active Substance: SULFAMETHOXAZOLE\TRIMETHOPRIM
     Indication: ANTIFUNGAL PROPHYLAXIS
     Dosage: 2 TABLET
     Route: 048
     Dates: start: 20110107, end: 20110120
  29. FOSAMAX [Concomitant]
     Active Substance: ALENDRONATE SODIUM
     Indication: OSTEOPOROSIS
     Route: 048
     Dates: start: 20120815, end: 20130123
  30. LOPEMIN (JAPAN) [Concomitant]
     Route: 065
     Dates: start: 20110622, end: 20110928
  31. ZYLORIC [Concomitant]
     Active Substance: ALLOPURINOL
  32. VALGANCICLOVIR [Suspect]
     Active Substance: VALGANCICLOVIR
     Route: 048
     Dates: start: 20120118, end: 20120222
  33. SULFAMETHOXAZOLE/TRIMETHOPRIM [Suspect]
     Active Substance: SULFAMETHOXAZOLE\TRIMETHOPRIM
     Indication: INFECTION PROPHYLAXIS
     Dosage: 1 TABLET
     Route: 048
     Dates: start: 20110121, end: 20130227
  34. AZITHROMYCIN [Suspect]
     Active Substance: AZITHROMYCIN ANHYDROUS
     Route: 065
     Dates: start: 20110305, end: 20111227
  35. RITONAVIR. [Suspect]
     Active Substance: RITONAVIR
     Indication: HIV INFECTION
     Route: 048
     Dates: start: 20110121, end: 20130331
  36. DARUNAVIR ETHANOLATE [Suspect]
     Active Substance: DARUNAVIR ETHANOLATE
     Indication: HIV INFECTION
     Route: 048
     Dates: start: 20110305, end: 20121227
  37. EPZICOM [Suspect]
     Active Substance: ABACAVIR SULFATE\LAMIVUDINE
     Indication: HIV INFECTION
     Dosage: 1 TABLET.
     Route: 048
     Dates: start: 20120111, end: 20140331
  38. SAWACILLIN [Concomitant]
     Active Substance: AMOXICILLIN
     Route: 048
     Dates: start: 20110205, end: 20110215
  39. LOXONIN [Concomitant]
     Active Substance: LOXOPROFEN SODIUM
     Route: 048
     Dates: start: 20110622, end: 20110726
  40. LOXONIN [Concomitant]
     Active Substance: LOXOPROFEN SODIUM
     Route: 065
     Dates: start: 20120222, end: 20130123
  41. AZITHROMYCIN [Suspect]
     Active Substance: AZITHROMYCIN ANHYDROUS
     Indication: OPPORTUNISTIC INFECTION PROPHYLAXIS
     Route: 065
     Dates: start: 20110107, end: 20110304
  42. DARUNAVIR ETHANOLATE [Suspect]
     Active Substance: DARUNAVIR ETHANOLATE
     Route: 048
     Dates: start: 20121228, end: 20130123
  43. MYSLEE [Concomitant]
     Active Substance: ZOLPIDEM TARTRATE
     Indication: INSOMNIA
     Route: 048
     Dates: start: 20110107, end: 20111114
  44. LOPEMIN (JAPAN) [Concomitant]
     Route: 065
     Dates: start: 20110122, end: 20110223
  45. REBAMIPIDE [Concomitant]
     Active Substance: REBAMIPIDE
     Indication: PROPHYLAXIS
     Route: 048
     Dates: start: 20120222, end: 20130123
  46. VALGANCICLOVIR [Suspect]
     Active Substance: VALGANCICLOVIR
     Route: 048
     Dates: start: 20110727, end: 20110914
  47. VALGANCICLOVIR [Suspect]
     Active Substance: VALGANCICLOVIR
     Route: 048
     Dates: start: 20111019, end: 20111125
  48. TRUVADA [Suspect]
     Active Substance: EMTRICITABINE\TENOFOVIR DISOPROXIL FUMARATE
     Indication: HIV INFECTION
     Dosage: 1 TABLET
     Route: 048
     Dates: start: 20110121, end: 20120110
  49. ESANBUTOL [Suspect]
     Active Substance: ETHAMBUTOL HYDROCHLORIDE
     Indication: MYCOBACTERIUM AVIUM COMPLEX INFECTION
     Route: 048
     Dates: start: 20110305, end: 20111227
  50. ESANBUTOL [Suspect]
     Active Substance: ETHAMBUTOL HYDROCHLORIDE
     Route: 048
     Dates: start: 20111228, end: 20130123
  51. CEPHADOL [Concomitant]
     Active Substance: DIPHENIDOL HYDROCHLORIDE
     Indication: DIZZINESS
     Route: 048
     Dates: start: 20110107, end: 20120128
  52. RISUMIC [Concomitant]
     Active Substance: AMEZINIUM METILSULFATE
     Indication: HYPOTENSION
     Route: 048
     Dates: start: 20110108, end: 20120127
  53. FLUCONAZOLE. [Concomitant]
     Active Substance: FLUCONAZOLE
     Route: 048
     Dates: start: 20110120, end: 20110224
  54. LOXONIN [Concomitant]
     Active Substance: LOXOPROFEN SODIUM
     Route: 048
     Dates: start: 20110727, end: 20110928
  55. GASMOTIN [Concomitant]
     Active Substance: MOSAPRIDE CITRATE
     Route: 048
     Dates: start: 20110302, end: 20120127
  56. MARZULENE-S [Concomitant]
     Active Substance: SODIUM GUALENATE
     Route: 048
     Dates: start: 20110129, end: 20110220
  57. REBAMIPIDE [Concomitant]
     Active Substance: REBAMIPIDE
     Dosage: WHEN HEADACHE OCCURED
     Route: 048
     Dates: start: 20130510, end: 20130721
  58. SAMTIREL [Concomitant]
     Active Substance: ATOVAQUONE
     Indication: ANTIFUNGAL PROPHYLAXIS
     Route: 048
     Dates: start: 20130227, end: 20130621

REACTIONS (16)
  - Hyperlipidaemia [Not Recovered/Not Resolved]
  - Back pain [Recovering/Resolving]
  - Hyperlipidaemia [Not Recovered/Not Resolved]
  - Cytopenia [Recovering/Resolving]
  - Bronchopneumonia [Recovering/Resolving]
  - Folate deficiency [Recovered/Resolved]
  - Nausea [Recovering/Resolving]
  - Diabetes mellitus [Not Recovered/Not Resolved]
  - Mycobacterium avium complex infection [Recovering/Resolving]
  - Liver disorder [Recovering/Resolving]
  - Hyperuricaemia [Not Recovered/Not Resolved]
  - Diarrhoea [Recovering/Resolving]
  - Periarthritis [Recovering/Resolving]
  - Lymphadenitis [Recovering/Resolving]
  - Renal impairment [Not Recovered/Not Resolved]
  - Osteoporosis [Recovering/Resolving]

NARRATIVE: CASE EVENT DATE: 20110107
